FAERS Safety Report 5480438-4 (Version None)
Quarter: 2007Q4

REPORT INFORMATION
  Report Type: 
  Country: None (occurrence: None)
  Receive Date: 20071009
  Receipt Date: 20071004
  Transmission Date: 20080405
  Serious: Yes (Hospitalization)
  Sender: FDA-Public Use
  Company Number: A0686129A

PATIENT
  Age: 83 Year
  Sex: Female

DRUGS (3)
  1. AVANDIA [Suspect]
     Dosage: 8MG TWICE PER DAY
     Route: 048
     Dates: start: 20030101
  2. METFORMIN HCL [Concomitant]
  3. ACTOS [Concomitant]

REACTIONS (2)
  - CARDIAC PACEMAKER MALFUNCTION [None]
  - TREMOR [None]
